FAERS Safety Report 20016394 (Version 1)
Quarter: 2021Q4

REPORT INFORMATION
  Report Type: Spontaneous
  Country: US (occurrence: None)
  Receive Date: 20211103
  Receipt Date: 20211103
  Transmission Date: 20220303
  Serious: No
  Sender: FDA-Public Use
  Company Number: None

PATIENT
  Age: 69 Year
  Sex: Male

DRUGS (1)
  1. CYCLOPHOSPHAMIDE [Suspect]
     Active Substance: CYCLOPHOSPHAMIDE
     Indication: Nephritic syndrome
     Dosage: FREQUENCY : TWICE A DAY;?
     Route: 048
     Dates: start: 202108

REACTIONS (6)
  - Muscle spasms [None]
  - Diarrhoea [None]
  - Nail discolouration [None]
  - Skin discolouration [None]
  - Palpitations [None]
  - Therapy change [None]

NARRATIVE: CASE EVENT DATE: 20211102
